FAERS Safety Report 20501978 (Version 1)
Quarter: 2022Q1

REPORT INFORMATION
  Report Type: Spontaneous
  Country: US (occurrence: None)
  Receive Date: 20220221
  Receipt Date: 20220221
  Transmission Date: 20220423
  Serious: Yes (Hospitalization)
  Sender: FDA-Public Use
  Company Number: None

PATIENT
  Age: 69 Year
  Sex: Female

DRUGS (1)
  1. CAPECITABINE [Suspect]
     Active Substance: CAPECITABINE
     Dosage: 500 MG BID ORAL
     Route: 048
     Dates: start: 2021

REACTIONS (2)
  - Infection [None]
  - Fatigue [None]

NARRATIVE: CASE EVENT DATE: 20220214
